FAERS Safety Report 4446729-0 (Version None)
Quarter: 2004Q3

REPORT INFORMATION
  Report Type: 
  Country: None (occurrence: None)
  Receive Date: 20040910
  Receipt Date: 20040831
  Transmission Date: 20050211
  Serious: Yes (Hospitalization, Other)
  Sender: FDA-Public Use
  Company Number: 200412466GDS

PATIENT
  Age: 27 Year
  Sex: Female
  Weight: 56 kg

DRUGS (3)
  1. CIPROFLOXACIN [Suspect]
     Indication: DIARRHOEA
     Dosage: 250 MG, TOTAL DAILY, ORAL; 250 MG, BID, ORAL
     Route: 048
     Dates: start: 20040523, end: 20040524
  2. CIPROFLOXACIN [Suspect]
     Indication: DIARRHOEA
     Dosage: 250 MG, TOTAL DAILY, ORAL; 250 MG, BID, ORAL
     Route: 048
     Dates: start: 20040519
  3. VOLTAREN [Concomitant]

REACTIONS (21)
  - ACCOMMODATION DISORDER [None]
  - BACTERIA STOOL IDENTIFIED [None]
  - CLOSTRIDIAL INFECTION [None]
  - DEPRESSED LEVEL OF CONSCIOUSNESS [None]
  - GASTROENTERITIS [None]
  - GRAND MAL CONVULSION [None]
  - HALLUCINATION [None]
  - HEADACHE [None]
  - HEPATITIS [None]
  - HYPERPHOSPHATAEMIA [None]
  - HYPERTENSION [None]
  - HYPERTENSIVE ENCEPHALOPATHY [None]
  - HYPERVOLAEMIA [None]
  - METABOLIC ACIDOSIS [None]
  - NEPHRITIS INTERSTITIAL [None]
  - NEPHROGENIC ANAEMIA [None]
  - NERVOUS SYSTEM DISORDER [None]
  - RENAL FAILURE ACUTE [None]
  - RESPIRATORY FAILURE [None]
  - SELF-MEDICATION [None]
  - VISION BLURRED [None]
